FAERS Safety Report 12191522 (Version 1)
Quarter: 2016Q1

REPORT INFORMATION
  Report Type: Spontaneous
  Country: US (occurrence: US)
  Receive Date: 20160318
  Receipt Date: 20160318
  Transmission Date: 20160526
  Serious: Yes (Other)
  Sender: FDA-Public Use
  Company Number: US-AMGEN-USASP2016021908

PATIENT
  Age: 70 Year
  Sex: Male
  Weight: 80.73 kg

DRUGS (1)
  1. REPATHA [Suspect]
     Active Substance: EVOLOCUMAB
     Indication: HYPERCHOLESTEROLAEMIA
     Dosage: 2 UNK, QWK
     Route: 030
     Dates: start: 20160123, end: 20160216

REACTIONS (22)
  - Wheezing [Recovering/Resolving]
  - Sleep disorder [Recovering/Resolving]
  - Fatigue [Unknown]
  - Diarrhoea [Unknown]
  - Paranasal sinus discomfort [Recovering/Resolving]
  - Weight decreased [Unknown]
  - Hypomania [Unknown]
  - Memory impairment [Unknown]
  - Feeling abnormal [Recovering/Resolving]
  - Hypoaesthesia [Unknown]
  - Blood pressure diastolic increased [Recovering/Resolving]
  - Skin disorder [Unknown]
  - Sneezing [Unknown]
  - Diaphragmatic spasm [Recovering/Resolving]
  - Increased viscosity of upper respiratory secretion [Recovering/Resolving]
  - Bedridden [Unknown]
  - Cough [Recovering/Resolving]
  - Depression [Unknown]
  - Disturbance in attention [Unknown]
  - Incorrect route of drug administration [Unknown]
  - Dissociation [Unknown]
  - Myalgia [Recovering/Resolving]
